FAERS Safety Report 5615786-8 (Version None)
Quarter: 2008Q1

REPORT INFORMATION
  Report Type: 
  Country: None (occurrence: None)
  Receive Date: 20080201
  Receipt Date: 20080123
  Transmission Date: 20080703
  Serious: Yes (Other)
  Sender: FDA-Public Use
  Company Number: 2008AP000254

PATIENT
  Age: 23 Year
  Sex: Female

DRUGS (5)
  1. PAROXETINE HCL [Suspect]
     Dosage: 20 MG; 10 MG;QOD; 5 MG;QD; 15 MG;QD
     Dates: start: 19960620
  2. PAROXETINE HCL [Suspect]
     Dosage: 20 MG; 10 MG;QOD; 5 MG;QD; 15 MG;QD
     Dates: start: 20020710
  3. PAROXETINE HCL [Suspect]
     Dosage: 20 MG; 10 MG;QOD; 5 MG;QD; 15 MG;QD
     Dates: start: 20020714
  4. PAROXETINE HCL [Suspect]
     Dosage: 20 MG; 10 MG;QOD; 5 MG;QD; 15 MG;QD
     Dates: start: 20030605
  5. DIAZEPAM [Concomitant]

REACTIONS (15)
  - ABDOMINAL DISTENSION [None]
  - AGITATION [None]
  - ANXIETY [None]
  - CONSTIPATION [None]
  - DIARRHOEA [None]
  - HALLUCINATION [None]
  - INITIAL INSOMNIA [None]
  - INSOMNIA [None]
  - LOSS OF LIBIDO [None]
  - MALAISE [None]
  - MOOD SWINGS [None]
  - NAUSEA [None]
  - NEGATIVE THOUGHTS [None]
  - PROCTALGIA FUGAX [None]
  - WITHDRAWAL SYNDROME [None]
